FAERS Safety Report 7382241-7 (Version None)
Quarter: 2011Q1

REPORT INFORMATION
  Report Type: 
  Country: None (occurrence: None)
  Receive Date: 20110329
  Receipt Date: 20110324
  Transmission Date: 20110831
  Serious: Yes (Hospitalization, Disabling, Other)
  Sender: FDA-Public Use
  Company Number: US-MERCK-1012USA02296

PATIENT
  Sex: Female

DRUGS (8)
  1. CENTRUM [Concomitant]
     Route: 065
  2. FOSAMAX [Suspect]
     Indication: OSTEOPOROSIS
     Route: 048
     Dates: start: 20000801, end: 20050101
  3. FOSAMAX PLUS D [Suspect]
     Indication: OSTEOPOROSIS
     Route: 048
     Dates: start: 20051108, end: 20090101
  4. CHOLECALCIFEROL [Concomitant]
     Route: 065
  5. BIOTIN [Concomitant]
     Route: 065
  6. CITRACAL [Concomitant]
     Route: 065
  7. ASCORBIC ACID [Concomitant]
     Route: 065
  8. CALTRATE [Concomitant]
     Route: 065

REACTIONS (10)
  - BASAL CELL CARCINOMA [None]
  - BASOSQUAMOUS CARCINOMA [None]
  - OSTEOPOROSIS [None]
  - STRESS FRACTURE [None]
  - LOW TURNOVER OSTEOPATHY [None]
  - FEMUR FRACTURE [None]
  - FOOT DEFORMITY [None]
  - HYPERTENSION [None]
  - FRACTURE NONUNION [None]
  - MENISCUS LESION [None]
